FAERS Safety Report 6179604-4 (Version None)
Quarter: 2009Q2

REPORT INFORMATION
  Report Type: 
  Country: None (occurrence: None)
  Receive Date: 20090501
  Receipt Date: 20090501
  Transmission Date: 20091009
  Serious: Yes (Hospitalization, Disabling)
  Sender: FDA-Public Use
  Company Number: None

PATIENT
  Age: 38 Year
  Sex: Female
  Weight: 68.0396 kg

DRUGS (1)
  1. LEVAQUIN [Suspect]
     Indication: INFECTION
     Dosage: 750 MG. 1/DAY PO
     Route: 048
     Dates: start: 20070827, end: 20070908

REACTIONS (5)
  - IMPAIRED HEALING [None]
  - INCISION SITE COMPLICATION [None]
  - MUSCLE ATROPHY [None]
  - OPEN WOUND [None]
  - TENDON DISORDER [None]
